FAERS Safety Report 18564538 (Version 3)
Quarter: 2021Q4

REPORT INFORMATION
  Report Type: Report from Study
  Country: CA (occurrence: CA)
  Receive Date: 20201201
  Receipt Date: 20211025
  Transmission Date: 20220303
  Serious: Yes (Other)
  Sender: FDA-Public Use
  Company Number: CA-TAKEDA-2020TUS033897

PATIENT
  Age: 29 Year
  Sex: Male

DRUGS (6)
  1. VEDOLIZUMAB [Suspect]
     Active Substance: VEDOLIZUMAB
     Indication: Crohn^s disease
     Dosage: 300 MILLIGRAM
     Route: 042
     Dates: start: 20200203
  2. PREDNISONE [Concomitant]
     Active Substance: PREDNISONE
     Dosage: 40 MILLIGRAM, QD
     Dates: start: 2016
  3. METHOTREXATE [Concomitant]
     Active Substance: METHOTREXATE
     Dosage: 15 MILLIGRAM, 1/WEEK
  4. STELARA [Concomitant]
     Active Substance: USTEKINUMAB
     Dosage: UNK
  5. IMURAN [Concomitant]
     Active Substance: AZATHIOPRINE
     Dosage: UNK
  6. MESALAMINE [Concomitant]
     Active Substance: MESALAMINE
     Dosage: UNK

REACTIONS (2)
  - Crohn^s disease [Not Recovered/Not Resolved]
  - Weight increased [Unknown]
